FAERS Safety Report 4944893-8 (Version None)
Quarter: 2006Q1

REPORT INFORMATION
  Report Type: 
  Country: None (occurrence: None)
  Receive Date: 20060118
  Receipt Date: 20050412
  Transmission Date: 20060701
  Serious: Yes (Other)
  Sender: FDA-Public Use
  Company Number: 2005EN000006

PATIENT
  Age: 52 Year
  Sex: Male
  Weight: 70 kg

DRUGS (3)
  1. ABELCET [Suspect]
     Indication: MUCORMYCOSIS
     Dosage: 380 MG; QD; IV
     Route: 042
     Dates: start: 20050323, end: 20050410
  2. VANCOMYCIN [Suspect]
     Indication: STAPHYLOCOCCAL INFECTION
     Dosage: 1 GM; Q12H; IV
     Route: 042
     Dates: start: 20050405
  3. INSULIN [Concomitant]

REACTIONS (3)
  - BLOOD CREATININE INCREASED [None]
  - CENTRAL LINE INFECTION [None]
  - RENAL IMPAIRMENT [None]
